FAERS Safety Report 10215153 (Version 1)
Quarter: 2014Q2

REPORT INFORMATION
  Report Type: Spontaneous
  Country: TR (occurrence: TR)
  Receive Date: 20140603
  Receipt Date: 20140603
  Transmission Date: 20141212
  Serious: Yes (Other)
  Sender: FDA-Public Use
  Company Number: CHPA2014TR007329

PATIENT
  Age: 63 Year
  Sex: Female

DRUGS (5)
  1. TAVEGYL [Suspect]
     Indication: VASCULITIS
     Dosage: UNK
     Dates: start: 1989
  2. TAVEGYL [Suspect]
     Indication: SEASONAL ALLERGY
  3. TAVEGYL [Suspect]
     Indication: FLUSHING
  4. TAVEGYL [Suspect]
     Indication: BODY TEMPERATURE INCREASED
  5. TAVEGYL [Suspect]
     Indication: OFF LABEL USE

REACTIONS (5)
  - Glaucoma [Unknown]
  - Hypertension [Unknown]
  - Dizziness [Unknown]
  - Nausea [Unknown]
  - Therapeutic response changed [Unknown]
